FAERS Safety Report 10388040 (Version 2)
Quarter: 2014Q3

REPORT INFORMATION
  Report Type: Spontaneous
  Country: SK (occurrence: SK)
  Receive Date: 20140815
  Receipt Date: 20140825
  Transmission Date: 20150326
  Serious: Yes (Other)
  Sender: FDA-Public Use
  Company Number: SK-WATSON-2014-17561

PATIENT
  Sex: Male

DRUGS (2)
  1. LEVODOPA-CARBIDOPA [Concomitant]
     Active Substance: CARBIDOPA\LEVODOPA
     Indication: PARKINSON^S DISEASE
     Dosage: UNK
     Route: 065
  2. ROPINIROLE (UNKNOWN) [Suspect]
     Active Substance: ROPINIROLE
     Indication: PARKINSON^S DISEASE
     Dosage: 12 MG, UNKNOWN
     Route: 065
     Dates: start: 2001

REACTIONS (1)
  - Hallucination, visual [Unknown]
